FAERS Safety Report 6079824-3 (Version None)
Quarter: 2009Q1

REPORT INFORMATION
  Report Type: 
  Country: None (occurrence: None)
  Receive Date: 20090212
  Receipt Date: 20090128
  Transmission Date: 20090719
  Serious: Yes (Life-Threatening, Other)
  Sender: FDA-Public Use
  Company Number: INT_00008_2009

PATIENT
  Age: 37 Year
  Sex: Female

DRUGS (1)
  1. CEFTRIAXONE [Suspect]
     Indication: DRUG USE FOR UNKNOWN INDICATION
     Dosage: (1 G 1X INTRAVENOUS (NOT OTHERWISE SPECIFIED)
     Route: 042

REACTIONS (14)
  - ANAPHYLACTIC SHOCK [None]
  - BETA HAEMOLYTIC STREPTOCOCCAL INFECTION [None]
  - CAESAREAN SECTION [None]
  - CHORIOAMNIONITIS [None]
  - CULTURE CERVIX POSITIVE [None]
  - DRUG EXPOSURE DURING PREGNANCY [None]
  - FEELING COLD [None]
  - POSTPARTUM HAEMORRHAGE [None]
  - PREMATURE SEPARATION OF PLACENTA [None]
  - PYREXIA [None]
  - RASH MACULO-PAPULAR [None]
  - TACHYCARDIA [None]
  - URTICARIA [None]
  - UTERINE ATONY [None]
